FAERS Safety Report 18503548 (Version 2)
Quarter: 2020Q4

REPORT INFORMATION
  Report Type: Report from Study
  Country: KR (occurrence: KR)
  Receive Date: 20201113
  Receipt Date: 20201118
  Transmission Date: 20210114
  Serious: Yes (Hospitalization, Other)
  Sender: FDA-Public Use
  Company Number: KR-JAZZ-2020-KR-014734

PATIENT
  Age: 12 Year
  Sex: Male
  Weight: 42 kg

DRUGS (2)
  1. DEFITELIO [Suspect]
     Active Substance: DEFIBROTIDE SODIUM
     Indication: VENOOCCLUSIVE DISEASE
     Dosage: 6.25 MILLIGRAM/KILOGRAM, QID
     Route: 042
     Dates: start: 20201102, end: 20201106
  2. BACYLOVIR [ACICLOVIR] [Concomitant]
     Indication: ANTIVIRAL PROPHYLAXIS
     Dosage: 200 MILLIGRAM, BID
     Route: 042
     Dates: start: 20201020

REACTIONS (1)
  - Urethral obstruction [Not Recovered/Not Resolved]

NARRATIVE: CASE EVENT DATE: 20201105
